FAERS Safety Report 19970065 (Version 1)
Quarter: 2021Q4

REPORT INFORMATION
  Report Type: Spontaneous
  Country: US (occurrence: US)
  Receive Date: 20211019
  Receipt Date: 20211019
  Transmission Date: 20220303
  Serious: Yes (Other)
  Sender: FDA-Public Use
  Company Number: US-ELI_LILLY_AND_COMPANY-US202110003229

PATIENT
  Sex: Male

DRUGS (1)
  1. GLUCAGON [Suspect]
     Active Substance: GLUCAGON
     Indication: Product used for unknown indication
     Dosage: UNK UNK, UNKNOWN
     Route: 058

REACTIONS (2)
  - Blindness unilateral [Unknown]
  - Visual impairment [Not Recovered/Not Resolved]
